FAERS Safety Report 4856072-3 (Version None)
Quarter: 2005Q4

REPORT INFORMATION
  Report Type: 
  Country: None (occurrence: None)
  Receive Date: 20051216
  Receipt Date: 20041105
  Transmission Date: 20060501
  Serious: Yes (Death, Hospitalization, Disabling)
  Sender: FDA-Public Use
  Company Number: US-MERCK-0411USA01122

PATIENT
  Age: 68 Year
  Sex: Female
  Weight: 73 kg

DRUGS (3)
  1. VIOXX [Suspect]
     Indication: ARTHRITIS
     Route: 048
     Dates: start: 20010101, end: 20021106
  2. TYLENOL [Concomitant]
     Route: 065
  3. ASPIRIN [Concomitant]
     Route: 065

REACTIONS (16)
  - ACUTE SINUSITIS [None]
  - ANXIETY [None]
  - BLOOD PRESSURE INCREASED [None]
  - BRAIN DEATH [None]
  - CEREBROVASCULAR ACCIDENT [None]
  - COMA [None]
  - CONTUSION [None]
  - EXCORIATION [None]
  - FALL [None]
  - HEADACHE [None]
  - HEAT EXHAUSTION [None]
  - NECK PAIN [None]
  - POLLAKIURIA [None]
  - PSYCHOMOTOR HYPERACTIVITY [None]
  - RHINITIS ALLERGIC [None]
  - SKIN DISORDER [None]
